FAERS Safety Report 24605839 (Version 2)
Quarter: 2025Q1

REPORT INFORMATION
  Report Type: Spontaneous
  Country: US (occurrence: US)
  Receive Date: 20241111
  Receipt Date: 20250101
  Transmission Date: 20250408
  Serious: Yes (Hospitalization, Other)
  Sender: NEUROCRINE BIOSCIENCES
  Company Number: US-NEUROCRINE BIOSCIENCES INC.-2024NBI10913

PATIENT
  Age: 65 Year
  Sex: Female

DRUGS (20)
  1. INGREZZA [Suspect]
     Active Substance: VALBENAZINE
     Indication: Tardive dyskinesia
     Route: 065
     Dates: start: 20240315, end: 20240717
  2. INGREZZA [Suspect]
     Active Substance: VALBENAZINE
     Route: 065
     Dates: start: 20240229, end: 20240315
  3. LITHOBID [Suspect]
     Active Substance: LITHIUM CARBONATE
     Indication: Bipolar disorder
  4. LITHOBID [Suspect]
     Active Substance: LITHIUM CARBONATE
     Route: 048
     Dates: start: 202305, end: 20240712
  5. ELIQUIS [Concomitant]
     Active Substance: APIXABAN
  6. ELIQUIS [Concomitant]
     Active Substance: APIXABAN
  7. WELLBUTRIN XL [Concomitant]
     Active Substance: BUPROPION HYDROCHLORIDE
     Indication: Depressed mood
     Route: 048
     Dates: start: 202305
  8. ATARAX [Concomitant]
     Active Substance: HYDROXYZINE HYDROCHLORIDE
  9. SEROQUEL [Concomitant]
     Active Substance: QUETIAPINE FUMARATE
     Indication: Bipolar disorder
     Route: 048
     Dates: start: 202305
  10. SEROQUEL [Concomitant]
     Active Substance: QUETIAPINE FUMARATE
     Indication: Anxiety
  11. SEROQUEL [Concomitant]
     Active Substance: QUETIAPINE FUMARATE
     Indication: Bipolar I disorder
     Route: 048
  12. SEROQUEL [Concomitant]
     Active Substance: QUETIAPINE FUMARATE
  13. SEROQUEL [Concomitant]
     Active Substance: QUETIAPINE FUMARATE
  14. HYDROXYZINE PAMOATE [Concomitant]
     Active Substance: HYDROXYZINE PAMOATE
     Indication: Anxiety
     Route: 048
     Dates: end: 20240712
  15. INDERAL [Concomitant]
     Active Substance: PROPRANOLOL HYDROCHLORIDE
     Indication: Anxiety
     Route: 048
     Dates: start: 202305
  16. COZAAR [Concomitant]
     Active Substance: LOSARTAN POTASSIUM
     Route: 048
  17. ALENDRONATE [Concomitant]
     Active Substance: ALENDRONATE SODIUM
     Route: 048
  18. PRILOSEC [Concomitant]
     Active Substance: OMEPRAZOLE MAGNESIUM
     Indication: Gastrooesophageal reflux disease
  19. PRILOSEC [Concomitant]
     Active Substance: OMEPRAZOLE MAGNESIUM
     Route: 048
  20. ALEVE [Concomitant]
     Active Substance: NAPROXEN SODIUM

REACTIONS (23)
  - Urinary tract infection [Unknown]
  - Subclavian artery thrombosis [Recovered/Resolved]
  - Toxicity to various agents [Recovered/Resolved]
  - Transient ischaemic attack [Recovered/Resolved]
  - Toxic encephalopathy [Unknown]
  - Pulmonary arterial hypertension [Unknown]
  - Nephrolithiasis [Recovered/Resolved]
  - Escherichia sepsis [Unknown]
  - Sepsis [Unknown]
  - Acute kidney injury [Unknown]
  - Left ventricular dysfunction [Unknown]
  - Normocytic anaemia [Unknown]
  - Hiatus hernia [Unknown]
  - Cystitis [Unknown]
  - Haemorrhoids [Unknown]
  - Oesophagitis [Unknown]
  - Essential tremor [Unknown]
  - Dehydration [Unknown]
  - Left atrial dilatation [Unknown]
  - Diverticulum intestinal [Unknown]
  - Upper respiratory tract infection [Unknown]
  - Dizziness [Unknown]
  - Constipation [Unknown]

NARRATIVE: CASE EVENT DATE: 20240601
